FAERS Safety Report 9126379 (Version 2)
Quarter: 2013Q1

REPORT INFORMATION
  Report Type: Report from Study
  Country: SG (occurrence: SG)
  Receive Date: 20130117
  Receipt Date: 20130122
  Transmission Date: 20140127
  Serious: Yes (Hospitalization)
  Sender: FDA-Public Use
  Company Number: SG-GLAXOSMITHKLINE-B0855812A

PATIENT
  Age: 77 Year
  Sex: Female

DRUGS (4)
  1. LAPATINIB [Suspect]
     Indication: BREAST CANCER
     Dosage: 750MG PER DAY
     Route: 048
     Dates: start: 20121214
  2. PACLITAXEL [Suspect]
     Indication: BREAST CANCER
     Dosage: 144MG WEEKLY
     Route: 042
     Dates: start: 20121214
  3. CARBOPLATIN [Suspect]
     Indication: BREAST CANCER
     Dosage: 146MG CYCLIC
     Route: 042
     Dates: start: 20121214
  4. INSULIN [Concomitant]

REACTIONS (2)
  - Diarrhoea [Recovered/Resolved]
  - Hypoglycaemia [Recovered/Resolved]
